FAERS Safety Report 24200654 (Version 1)
Quarter: 2024Q3

REPORT INFORMATION
  Report Type: Spontaneous
  Country: US (occurrence: US)
  Receive Date: 20240812
  Receipt Date: 20240812
  Transmission Date: 20241016
  Serious: No
  Sender: ANI
  Company Number: US-ANIPHARMA-2024-US-039952

PATIENT
  Sex: Female

DRUGS (13)
  1. CORTICOTROPIN [Suspect]
     Active Substance: CORTICOTROPIN
     Indication: Pulmonary sarcoidosis
     Dosage: INJECT 40 UNITS (0.5ML) SUBCUTANEOUSLY EVERY 72 HOURS.
     Route: 058
  2. ZINC 15 [Concomitant]
  3. VITAMIN D3 [Concomitant]
     Active Substance: CHOLECALCIFEROL
  4. METHOTREXATE SODIUM [Concomitant]
     Active Substance: METHOTREXATE SODIUM
  5. TORSEMIDE [Concomitant]
     Active Substance: TORSEMIDE
  6. PREDNISONE [Concomitant]
     Active Substance: PREDNISONE
  7. BENZONATATE [Concomitant]
     Active Substance: BENZONATATE
  8. FOLIC ACID [Concomitant]
     Active Substance: FOLIC ACID
  9. AMBIEN CR [Concomitant]
     Active Substance: ZOLPIDEM TARTRATE
  10. LUNESTA [Concomitant]
     Active Substance: ESZOPICLONE
  11. VITAMIN C [Concomitant]
     Active Substance: ASCORBIC ACID
  12. CALCIUM GLUCONATE [Concomitant]
     Active Substance: CALCIUM GLUCONATE
  13. VITAMIN B COMPLEX [Concomitant]
     Active Substance: CYANOCOBALAMIN\DEXPANTHENOL\NIACINAMIDE\PYRIDOXINE HYDROCHLORIDE\RIBOFLAVIN 5^-PHOSPHATE SODIUM\THIA

REACTIONS (1)
  - Muscular weakness [Not Recovered/Not Resolved]
